FAERS Safety Report 5386437-5 (Version None)
Quarter: 2007Q3

REPORT INFORMATION
  Report Type: 
  Country: None (occurrence: None)
  Receive Date: 20070710
  Receipt Date: 20070625
  Transmission Date: 20080115
  Serious: Yes (Hospitalization)
  Sender: FDA-Public Use
  Company Number: ENTC2007-0177

PATIENT
  Age: 62 Year
  Sex: Male

DRUGS (5)
  1. STALEVO 100 [Suspect]
     Indication: PARKINSON'S DISEASE
     Route: 047
     Dates: start: 20061001, end: 20070222
  2. SECTRAL [Concomitant]
  3. TRIVASTAL [Concomitant]
  4. ZESTORETIC [Concomitant]
  5. ATORVASTATIN CALCIUM [Concomitant]

REACTIONS (2)
  - COLITIS [None]
  - CONSTIPATION [None]
